FAERS Safety Report 21097159 (Version 1)
Quarter: 2022Q3

REPORT INFORMATION
  Report Type: Spontaneous
  Country: US (occurrence: US)
  Receive Date: 20220719
  Receipt Date: 20220719
  Transmission Date: 20221026
  Serious: No
  Sender: FDA-Public Use
  Company Number: US-BRACCO-2021US04030

PATIENT
  Sex: Male

DRUGS (1)
  1. AXUMIN [Suspect]
     Active Substance: FLUCICLOVINE F-18
     Indication: Positron emission tomogram
     Dosage: UNK

REACTIONS (1)
  - Positron emission tomogram abnormal [Unknown]
